FAERS Safety Report 25776490 (Version 1)
Quarter: 2025Q3

REPORT INFORMATION
  Report Type: Spontaneous
  Country: US (occurrence: US)
  Receive Date: 20250909
  Receipt Date: 20250909
  Transmission Date: 20251020
  Serious: No
  Sender: DOMPE FARMACEUTICI
  Company Number: US-FARMAPROD-202503-0697

PATIENT
  Sex: Female

DRUGS (23)
  1. OXERVATE [Suspect]
     Active Substance: CENEGERMIN-BKBJ
     Indication: Neurotrophic keratopathy
     Route: 047
     Dates: start: 20250225
  2. OXERVATE [Suspect]
     Active Substance: CENEGERMIN-BKBJ
  3. OXERVATE [Suspect]
     Active Substance: CENEGERMIN-BKBJ
  4. Optase hylonight [Concomitant]
     Dates: start: 20241011
  5. POTASSIUM [Concomitant]
     Active Substance: POTASSIUM
  6. MIEBO [Concomitant]
     Active Substance: PERFLUOROHEXYLOCTANE
     Dates: start: 20250114
  7. SODIUM CARBONATE [Concomitant]
     Active Substance: SODIUM CARBONATE
     Dates: start: 20241106
  8. NITROFURANTOIN [Concomitant]
     Active Substance: NITROFURANTOIN
  9. MOXIFLOXACIN [Concomitant]
     Active Substance: MOXIFLOXACIN
     Dates: start: 20240920
  10. RESTASIS [Concomitant]
     Active Substance: CYCLOSPORINE
     Dates: start: 20240905
  11. XIIDRA [Concomitant]
     Active Substance: LIFITEGRAST
     Dates: start: 20240830
  12. LEVOTHYROXINE SODIUM [Concomitant]
     Active Substance: LEVOTHYROXINE SODIUM
     Dates: start: 20240816
  13. LYOTHYRONINE SODIUM [Concomitant]
     Dates: start: 20240816
  14. ATORVASTATIN [Concomitant]
     Active Substance: ATORVASTATIN
     Dates: start: 20240816
  15. CARVEDILOL [Concomitant]
     Active Substance: CARVEDILOL
     Dates: start: 20240816
  16. HYDROXYCHLOROQUINE [Concomitant]
     Active Substance: HYDROXYCHLOROQUINE
     Dates: start: 20240816
  17. ESCITALOPRAM [Concomitant]
     Active Substance: ESCITALOPRAM OXALATE
     Dates: start: 20240816
  18. INSULIN LISPRO [Concomitant]
     Active Substance: INSULIN LISPRO
     Dates: start: 20240816
  19. CEQUA [Concomitant]
     Active Substance: CYCLOSPORINE
     Dates: start: 20240816
  20. ERYTHROMYCIN BASE [Concomitant]
     Active Substance: ERYTHROMYCIN
  21. REFRESH RELIEVA PF [Concomitant]
     Active Substance: CARBOXYMETHYLCELLULOSE SODIUM\GLYCERIN
     Dates: start: 20240816
  22. DE3 OMEGA BENEFITS [Concomitant]
     Dosage: 1-3 CAPSULE DAILY
     Dates: start: 20241107
  23. AUTOLOGOUS SERUM TEARS [Concomitant]

REACTIONS (8)
  - Eye irritation [Not Recovered/Not Resolved]
  - Photophobia [Not Recovered/Not Resolved]
  - Accidental overdose [Unknown]
  - Eye pain [Not Recovered/Not Resolved]
  - Drug ineffective [Not Recovered/Not Resolved]
  - Vision blurred [Unknown]
  - Ocular discomfort [Unknown]
  - Eyelid function disorder [Unknown]
